FAERS Safety Report 8613542-X (Version None)
Quarter: 2012Q3

REPORT INFORMATION
  Report Type: 
  Country: None (occurrence: None)
  Receive Date: 20120823
  Receipt Date: 20120808
  Transmission Date: 20120928
  Serious: Yes (Hospitalization)
  Sender: FDA-Public Use
  Company Number: DE-MERCK-1208DEU004241

PATIENT

DRUGS (10)
  1. JANUMET [Suspect]
     Dosage: UNK
     Route: 048
     Dates: start: 20120725
  2. ASPIRIN [Concomitant]
     Dosage: UNK
     Dates: start: 20120701
  3. TORSEMIDE [Concomitant]
     Dosage: UNK
     Dates: start: 20120701
  4. PANTOPRAZOLE [Concomitant]
     Dosage: UNK
     Dates: start: 20120701
  5. NAC DIAGNOSTIC REAGENT [Concomitant]
     Dosage: UNK
     Dates: start: 20120701
  6. JANUMET [Suspect]
     Indication: DIABETES MELLITUS
     Dosage: UNK
     Route: 048
     Dates: end: 20120301
  7. FALITHROM [Concomitant]
     Dosage: UNK
     Dates: start: 20120701
  8. AMLODIPINE [Concomitant]
     Dosage: UNK
     Dates: start: 20120701
  9. DIGITOXIN TAB [Concomitant]
     Dosage: UNK
     Dates: start: 20120701
  10. METOPROLOL TARTRATE [Concomitant]
     Dosage: UNK
     Dates: start: 20120701

REACTIONS (4)
  - GENERALISED OEDEMA [None]
  - BRONCHITIS [None]
  - DYSPNOEA [None]
  - ATRIAL FIBRILLATION [None]
